FAERS Safety Report 10776260 (Version 2)
Quarter: 2015Q1

REPORT INFORMATION
  Report Type: Spontaneous
  Country: US (occurrence: US)
  Receive Date: 20150209
  Receipt Date: 20150209
  Transmission Date: 20150721
  Serious: Yes (Hospitalization, Other)
  Sender: FDA-Public Use
  Company Number: US-ACTAVIS-2015-01443

PATIENT
  Age: 61 Year
  Sex: Female

DRUGS (6)
  1. CLOZAPINE (UNKNOWN) [Suspect]
     Active Substance: CLOZAPINE
     Indication: SCHIZOPHRENIA
     Dosage: 700 MG, DAILY
     Route: 065
  2. VANCOMYCIN [Concomitant]
     Active Substance: VANCOMYCIN
     Indication: POSTOPERATIVE CARE
     Dosage: UNK
     Route: 065
  3. CLONAZEPAM (AELLC) [Suspect]
     Active Substance: CLONAZEPAM
     Indication: PRODUCT USED FOR UNKNOWN INDICATION
     Dosage: 0.5 MG, DAILY
     Route: 065
  4. CLOZAPINE (UNKNOWN) [Interacting]
     Active Substance: CLOZAPINE
     Dosage: 100 MG, DAILY
     Route: 065
  5. ERTAPENEM [Concomitant]
     Active Substance: ERTAPENEM
     Indication: POSTOPERATIVE CARE
  6. MIRTAZAPINE (ACTAVIS LABORATORIES FL) [Interacting]
     Active Substance: MIRTAZAPINE
     Indication: SCHIZOPHRENIA
     Dosage: 7.5 MG, DAILY
     Route: 065

REACTIONS (8)
  - Mental status changes [Recovered/Resolved]
  - Confusional state [None]
  - Sedation [None]
  - Toxicity to various agents [None]
  - Drug interaction [Recovered/Resolved]
  - Antipsychotic drug level increased [Unknown]
  - Staphylococcal sepsis [None]
  - Somnolence [None]
